APPROVED DRUG PRODUCT: MUTAMYCIN
Active Ingredient: MITOMYCIN
Strength: 20MG/VIAL
Dosage Form/Route: INJECTABLE;INJECTION
Application: A062336 | Product #002
Applicant: BRISTOL MYERS CO
Approved: Approved Prior to Jan 1, 1982 | RLD: No | RS: No | Type: DISCN